FAERS Safety Report 7179240-7 (Version None)
Quarter: 2010Q4

REPORT INFORMATION
  Report Type: 
  Country: None (occurrence: None)
  Receive Date: 20101221
  Receipt Date: 20101208
  Transmission Date: 20110411
  Serious: Yes (Hospitalization)
  Sender: FDA-Public Use
  Company Number: JP-CELGENEUS-087-21880-10100394

PATIENT
  Sex: Female
  Weight: 41 kg

DRUGS (27)
  1. REVLIMID [Suspect]
     Indication: MULTIPLE MYELOMA
     Route: 048
     Dates: start: 20100827, end: 20100916
  2. REVLIMID [Suspect]
     Route: 048
     Dates: start: 20100928, end: 20101019
  3. REVLIMID [Suspect]
     Route: 048
     Dates: start: 20101026, end: 20101116
  4. LENADEX [Suspect]
     Indication: MULTIPLE MYELOMA
     Route: 048
     Dates: start: 20100827, end: 20100830
  5. LENADEX [Suspect]
     Route: 048
     Dates: start: 20100904, end: 20100907
  6. LENADEX [Suspect]
     Route: 048
     Dates: start: 20100912, end: 20100915
  7. LENADEX [Suspect]
     Route: 048
     Dates: start: 20100928, end: 20100929
  8. LENADEX [Suspect]
     Route: 048
     Dates: start: 20101005, end: 20101006
  9. LENADEX [Suspect]
     Route: 048
     Dates: start: 20101012, end: 20101013
  10. LENADEX [Suspect]
     Route: 048
     Dates: start: 20101026, end: 20101027
  11. LENADEX [Suspect]
     Route: 048
     Dates: start: 20101102, end: 20101103
  12. LENADEX [Suspect]
     Route: 048
     Dates: start: 20101109, end: 20101110
  13. OMEPRAL [Concomitant]
     Indication: PROPHYLAXIS
     Route: 048
     Dates: start: 20100827, end: 20100830
  14. OMEPRAL [Concomitant]
     Route: 048
     Dates: start: 20100904, end: 20100907
  15. OMEPRAL [Concomitant]
     Route: 048
     Dates: start: 20100912, end: 20100915
  16. PALGIN [Concomitant]
     Indication: MULTIPLE MYELOMA
     Route: 048
     Dates: start: 20100106
  17. OSTELUC [Concomitant]
     Indication: MULTIPLE MYELOMA
     Route: 048
     Dates: start: 20100106
  18. SELBEX [Concomitant]
     Indication: PROPHYLAXIS
     Route: 048
     Dates: start: 20100106
  19. GASMOTIN [Concomitant]
     Indication: PROPHYLAXIS
     Route: 048
     Dates: start: 20100716, end: 20100912
  20. NATRIX [Concomitant]
     Indication: HYPERTENSION
     Route: 048
     Dates: start: 20100701, end: 20100923
  21. BLOPRESS [Concomitant]
     Indication: HYPERTENSION
     Route: 048
     Dates: start: 20100702
  22. LAXOBERON [Concomitant]
     Indication: MULTIPLE MYELOMA
     Route: 048
     Dates: start: 20100625, end: 20100927
  23. DUROTEP MT [Concomitant]
     Indication: MULTIPLE MYELOMA
     Route: 062
     Dates: start: 20100715
  24. CALCIUM LACTATE [Concomitant]
     Route: 048
     Dates: start: 20100916
  25. D-ALFA [Concomitant]
     Route: 048
     Dates: start: 20100922
  26. MAGMITT [Concomitant]
     Route: 048
     Dates: start: 20100928
  27. CALCICOL [Concomitant]
     Route: 051
     Dates: start: 20100920, end: 20100920

REACTIONS (3)
  - HYPOCALCAEMIA [None]
  - HYPOMAGNESAEMIA [None]
  - TETANY [None]
